FAERS Safety Report 25032926 (Version 1)
Quarter: 2025Q1

REPORT INFORMATION
  Report Type: Spontaneous
  Country: SE (occurrence: SE)
  Receive Date: 20250303
  Receipt Date: 20250303
  Transmission Date: 20250408
  Serious: Yes (Other)
  Sender: NOVARTIS
  Company Number: SE-002147023-NVSC2025SE034229

PATIENT
  Sex: Male

DRUGS (3)
  1. DESFERAL [Suspect]
     Active Substance: DEFEROXAMINE MESYLATE
     Indication: Haemochromatosis
     Route: 042
     Dates: start: 202408
  2. DESFERAL [Suspect]
     Active Substance: DEFEROXAMINE MESYLATE
     Route: 042
     Dates: start: 202411
  3. DESFERAL [Suspect]
     Active Substance: DEFEROXAMINE MESYLATE
     Route: 058

REACTIONS (2)
  - Injection site infection [Unknown]
  - Pyrexia [Not Recovered/Not Resolved]

NARRATIVE: CASE EVENT DATE: 20241101
